FAERS Safety Report 18559070 (Version 1)
Quarter: 2020Q4

REPORT INFORMATION
  Report Type: Spontaneous
  Country: PL (occurrence: PL)
  Receive Date: 20201130
  Receipt Date: 20201130
  Transmission Date: 20210114
  Serious: Yes (Other)
  Sender: FDA-Public Use
  Company Number: PL-ROCHE-2720771

PATIENT
  Age: 72 Year
  Sex: Female

DRUGS (12)
  1. KADCYLA [Suspect]
     Active Substance: ADO-TRASTUZUMAB EMTANSINE
     Indication: HER2 POSITIVE BREAST CANCER
     Route: 058
     Dates: start: 201907, end: 20200623
  2. ZOLEDRONIC ACID [Suspect]
     Active Substance: ZOLEDRONIC ACID
     Indication: HER2 POSITIVE BREAST CANCER
     Route: 042
     Dates: start: 201907, end: 20200623
  3. CO AMLESSA [Concomitant]
  4. CO AMLESSA [Concomitant]
  5. CALPEROS OSTEO [Concomitant]
  6. NEUROVIT (POLAND) [Concomitant]
  7. PERJETA [Suspect]
     Active Substance: PERTUZUMAB
     Route: 042
  8. EUTHYROX [Concomitant]
     Active Substance: LEVOTHYROXINE SODIUM
  9. CO AMLESSA [Concomitant]
  10. CO AMLESSA [Concomitant]
  11. PERJETA [Suspect]
     Active Substance: PERTUZUMAB
     Indication: HER2 POSITIVE BREAST CANCER
     Dosage: 840 MG LOADING DOSE
     Route: 065
     Dates: start: 201907, end: 20200623
  12. DOCETAXEL. [Suspect]
     Active Substance: DOCETAXEL
     Indication: HER2 POSITIVE BREAST CANCER
     Route: 065
     Dates: start: 201907, end: 20200623

REACTIONS (2)
  - Hepatic lesion [Unknown]
  - Anaemia [Unknown]
